FAERS Safety Report 10811970 (Version 2)
Quarter: 2015Q1

REPORT INFORMATION
  Report Type: Report from Study
  Country: KR (occurrence: KR)
  Receive Date: 20150217
  Receipt Date: 20150304
  Transmission Date: 20150721
  Serious: Yes (Life-Threatening, Hospitalization, Other)
  Sender: FDA-Public Use
  Company Number: KR-ABBVIE-11P-090-0845596-00

PATIENT
  Sex: Female

DRUGS (122)
  1. RALTEGRAVIR [Concomitant]
     Active Substance: RALTEGRAVIR
     Dosage: 800 MG DAILY
     Dates: start: 20110819, end: 20111007
  2. 3TC [Concomitant]
     Active Substance: LAMIVUDINE
     Indication: ANTIRETROVIRAL THERAPY
     Dosage: 300 MG DAILY
     Dates: start: 20110328, end: 20111007
  3. GASTER [Concomitant]
     Active Substance: FAMOTIDINE
     Indication: PROPHYLAXIS AGAINST GASTROINTESTINAL ULCER
     Dosage: DAILY DOSE 40 MG
     Route: 048
     Dates: start: 20110705, end: 20110713
  4. DIFLUCAN [Concomitant]
     Active Substance: FLUCONAZOLE
     Dosage: 10MG/ML 35ML
     Route: 048
     Dates: start: 20110810
  5. POTASSIUM CHLORIDE. [Concomitant]
     Active Substance: POTASSIUM CHLORIDE
     Dosage: 3G/20ML, TOTAL DAILY DOSE 3 VIALS
     Route: 042
     Dates: start: 20110926, end: 20110926
  6. ENDOXAN [Concomitant]
     Active Substance: CYCLOPHOSPHAMIDE
     Indication: B-CELL LYMPHOMA
     Dosage: 500MG INJ 500MG, 800MG DAILY
     Route: 042
     Dates: start: 20110525, end: 20110525
  7. EMEND [Concomitant]
     Active Substance: APREPITANT
     Indication: PROPHYLAXIS OF NAUSEA AND VOMITING
     Dosage: 80 MG DAILY
     Route: 048
     Dates: start: 20110527, end: 20110527
  8. CALCIUM GLUCONATE. [Concomitant]
     Active Substance: CALCIUM GLUCONATE
     Dosage: 2G/20ML 20ML, 1 AMPOULE DAILY
     Route: 042
     Dates: start: 20111013, end: 20111013
  9. TYLENOL ER [Concomitant]
     Active Substance: ACETAMINOPHEN
     Indication: PREMEDICATION
     Route: 048
     Dates: start: 20110924, end: 20110928
  10. ABACAVIR [Concomitant]
     Active Substance: ABACAVIR
     Indication: ANTIRETROVIRAL THERAPY
     Dosage: 600 MG DAILY
     Dates: start: 20110328, end: 20110728
  11. POTASSIUM CHLORIDE. [Concomitant]
     Active Substance: POTASSIUM CHLORIDE
     Dosage: 40INJ 3G/20ML, DAILY 5 AMPOULES
     Route: 042
     Dates: start: 20111004, end: 20111004
  12. POTASSIUM CHLORIDE. [Concomitant]
     Active Substance: POTASSIUM CHLORIDE
     Dosage: 40INJ 3G/20ML, DAILY 2 AMPOULES
     Route: 042
     Dates: start: 20111027, end: 20111027
  13. POTASSIUM CHLORIDE. [Concomitant]
     Active Substance: POTASSIUM CHLORIDE
     Dosage: 40INJ 3G/20ML, 1MG DAILY
     Route: 042
     Dates: start: 20111028, end: 20111104
  14. PHENIRAMINE [Concomitant]
     Active Substance: PHENIRAMINE
     Dosage: 4MG/2ML 2ML
     Route: 042
     Dates: start: 20110615, end: 20110615
  15. SODIUM BICARBONATE. [Concomitant]
     Active Substance: SODIUM BICARBONATE
     Indication: GASTRIC ULCER
     Dosage: 3 MG DAILY
     Route: 048
     Dates: start: 20110529, end: 20110627
  16. CENTRUM SILVER [Concomitant]
     Active Substance: VITAMINS
     Indication: VITAMIN SUPPLEMENTATION
     Route: 048
     Dates: start: 20110830
  17. PLATELETS [Concomitant]
     Active Substance: HUMAN PLATELET, ALLOGENIC
     Dosage: (PHERESIS) 1 PACK
     Route: 042
     Dates: start: 20111004, end: 20111004
  18. PLATELETS [Concomitant]
     Active Substance: HUMAN PLATELET, ALLOGENIC
     Dosage: 8 PACK
     Route: 042
     Dates: start: 20111031, end: 20111031
  19. MASI [Concomitant]
     Indication: BLOOD MAGNESIUM DECREASED
     Dosage: 2G/20ML, 20ML, TOTAL DAILY DOSE 1 AMP
     Dates: start: 20111002, end: 20111002
  20. LASIX [Concomitant]
     Active Substance: FUROSEMIDE
     Dosage: 20MG/2ML, 10 MG DAILY
     Route: 042
     Dates: start: 20111018, end: 20111018
  21. GASTER [Concomitant]
     Active Substance: FAMOTIDINE
     Indication: GASTRIC HAEMORRHAGE
     Dosage: DAILY DOSE 40 MG
     Route: 048
     Dates: start: 20111013
  22. DIFLUCAN [Concomitant]
     Active Substance: FLUCONAZOLE
     Indication: ORAL CANDIDIASIS
     Dosage: 100 MG DAILY
     Route: 048
     Dates: start: 20110516, end: 20110616
  23. ZITHROMAX [Concomitant]
     Active Substance: AZITHROMYCIN DIHYDRATE
     Indication: OPPORTUNISTIC INFECTION PROPHYLAXIS
     Route: 048
     Dates: start: 20110518, end: 20110525
  24. MACPERAN [Concomitant]
     Dosage: 8.46 MG/2 ML
     Dates: start: 20111004, end: 20111004
  25. POTASSIUM CHLORIDE. [Concomitant]
     Active Substance: POTASSIUM CHLORIDE
     Dosage: 2 VIALS DAILY, 40INJ 3G/20ML
     Route: 042
     Dates: start: 20110905, end: 20110905
  26. POTASSIUM CHLORIDE. [Concomitant]
     Active Substance: POTASSIUM CHLORIDE
     Dosage: 40INJ 3G/20ML, DAILY 1 AMPOULE
     Route: 042
     Dates: start: 20111005, end: 20111005
  27. POTASSIUM CHLORIDE. [Concomitant]
     Active Substance: POTASSIUM CHLORIDE
     Dosage: 40INJ 3G/20ML, DAILY 2 AMPOULES
     Route: 042
     Dates: start: 20111024, end: 20111024
  28. POTASSIUM CHLORIDE. [Concomitant]
     Active Substance: POTASSIUM CHLORIDE
     Dosage: 40INJ 3G/20ML, DAILY 1 AMPOULE
     Route: 042
     Dates: start: 20111025, end: 20111025
  29. PHENIRAMINE [Concomitant]
     Active Substance: PHENIRAMINE
     Indication: PREMEDICATION
     Dosage: 4MG/2ML 2ML
     Route: 042
     Dates: start: 20110530, end: 20110530
  30. PHENIRAMINE [Concomitant]
     Active Substance: PHENIRAMINE
     Dosage: 4MG/2ML, TOTAL DAILY DOSE 4MG
     Route: 042
     Dates: start: 20110929, end: 20110929
  31. ALOXI [Concomitant]
     Active Substance: PALONOSETRON HYDROCHLORIDE
     Indication: PROPHYLAXIS OF NAUSEA AND VOMITING
     Dosage: 0.25 MG DAILY
     Route: 042
     Dates: start: 20110525, end: 20110525
  32. TAMIPOOL [Concomitant]
     Indication: VITAMIN SUPPLEMENTATION
     Dosage: 1 VIAL
     Route: 042
     Dates: start: 20110720, end: 20110724
  33. K-CONTIN CONTINUS [Concomitant]
     Dosage: 1800 MG DAILY
     Route: 048
     Dates: start: 20110902, end: 20110902
  34. CALCIUM GLUCONATE. [Concomitant]
     Active Substance: CALCIUM GLUCONATE
     Dosage: 2G/20ML 20ML, 2 AMPOULES DAILY
     Route: 042
     Dates: start: 20111010, end: 20111011
  35. PHENIRAMINE [Concomitant]
     Active Substance: PHENIRAMINE
     Indication: CHEMOTHERAPY
     Dosage: 4MG/2ML 2ML
     Dates: start: 20111005, end: 20111005
  36. SODIUM CHLORIDE. [Concomitant]
     Active Substance: SODIUM CHLORIDE
     Dosage: 2 VIALS, 2.34G/ML
     Route: 042
     Dates: start: 20110911, end: 20110913
  37. SODIUM CHLORIDE. [Concomitant]
     Active Substance: SODIUM CHLORIDE
     Dosage: 3 VIALS, 2.34G/20ML
     Route: 042
     Dates: start: 20110923
  38. PLATELETS [Concomitant]
     Active Substance: HUMAN PLATELET, ALLOGENIC
     Dosage: 8 PACK
     Route: 042
     Dates: start: 20111025, end: 20111025
  39. DIFLUCAN [Concomitant]
     Active Substance: FLUCONAZOLE
     Dosage: 10MG/ML 35ML
     Route: 048
     Dates: start: 20110529, end: 20110616
  40. PHENIRAMINE [Concomitant]
     Active Substance: PHENIRAMINE
     Dosage: 4MG/2ML 2ML
     Route: 042
     Dates: start: 20110617, end: 20110617
  41. CYMEVENE [Concomitant]
     Active Substance: GANCICLOVIR
     Indication: CYTOMEGALOVIRUS COLITIS
     Dosage: 400 MG DAILY
     Route: 042
     Dates: start: 20110616, end: 20110618
  42. SEPTRIN [Concomitant]
     Active Substance: SULFAMETHOXAZOLE\TRIMETHOPRIM
     Indication: PNEUMOCYSTIS JIROVECII PNEUMONIA
  43. K-CONTIN CONTINUS [Concomitant]
     Indication: MINERAL SUPPLEMENTATION
     Dosage: 1800 MG DAILY
     Route: 048
     Dates: start: 20110727, end: 20110802
  44. HANIL FLASYNIL [Concomitant]
     Indication: CLOSTRIDIUM DIFFICILE COLITIS
     Dosage: 1500 MG DAILY
     Route: 048
     Dates: start: 20110808
  45. STOGAR [Concomitant]
     Indication: PROPHYLAXIS AGAINST GASTROINTESTINAL ULCER
     Dosage: 20 MG DAILY
     Route: 048
     Dates: start: 20110809
  46. CALCIUM GLUCONATE. [Concomitant]
     Active Substance: CALCIUM GLUCONATE
     Indication: MINERAL SUPPLEMENTATION
     Dosage: 2G/20ML/20ML, 1 VIAL DAILY
     Dates: start: 20110812
  47. CALCIUM GLUCONATE. [Concomitant]
     Active Substance: CALCIUM GLUCONATE
     Dosage: 2G/20ML, 20ML, TOTAL DAILY DOSE 1 VIAL
     Route: 042
     Dates: start: 20111002, end: 20111004
  48. PLATELETS [Concomitant]
     Active Substance: HUMAN PLATELET, ALLOGENIC
     Indication: PLATELET DISORDER
     Dosage: SEVEN PACK
     Route: 042
     Dates: start: 20110915, end: 20110916
  49. DBPHARM PENTAMIDE ISETHIONATE [Concomitant]
     Indication: PROPHYLAXIS
  50. KALETRA [Suspect]
     Active Substance: LOPINAVIR\RITONAVIR
     Indication: HIV INFECTION
     Route: 048
     Dates: start: 20110518, end: 20110616
  51. KALETRA [Suspect]
     Active Substance: LOPINAVIR\RITONAVIR
     Route: 048
     Dates: start: 20110713, end: 20110728
  52. POTASSIUM CHLORIDE. [Concomitant]
     Active Substance: POTASSIUM CHLORIDE
     Indication: MINERAL SUPPLEMENTATION
     Dosage: 40INJ 3G/20ML
     Route: 042
     Dates: start: 20110531, end: 20110604
  53. POTASSIUM CHLORIDE. [Concomitant]
     Active Substance: POTASSIUM CHLORIDE
     Indication: CHEMOTHERAPY
     Dosage: 40INJ 3G/20ML
     Route: 042
     Dates: start: 20110721, end: 20110724
  54. SEPTRIN [Concomitant]
     Active Substance: SULFAMETHOXAZOLE\TRIMETHOPRIM
     Indication: PNEUMOCYSTIS JIROVECII PNEUMONIA
  55. GASTER [Concomitant]
     Active Substance: FAMOTIDINE
     Indication: PROPHYLAXIS
     Dosage: 20MG(VIAL) DAILY
     Route: 042
     Dates: start: 20111003, end: 20111012
  56. THIAMINE [Concomitant]
     Active Substance: THIAMINE
     Indication: VITAMIN SUPPLEMENTATION
     Dosage: 50MG/2ML, 50 MG DAILY
     Route: 042
     Dates: start: 20110721, end: 20110724
  57. THIAMINE HCL [Concomitant]
     Dosage: 30 MG DAILY
     Dates: start: 20110907
  58. PLATELETS [Concomitant]
     Active Substance: HUMAN PLATELET, ALLOGENIC
     Dosage: 8 PACK
     Route: 042
     Dates: start: 20111002, end: 20111002
  59. TRIDOL [Concomitant]
     Indication: CANCER PAIN
     Dosage: TOTAL DAILY DOSE 200 MG
     Route: 042
     Dates: start: 20110924, end: 20111012
  60. TRIDOL [Concomitant]
     Indication: B-CELL LYMPHOMA
  61. PHOSTEN [Concomitant]
     Indication: BLOOD POTASSIUM DECREASED
     Dosage: 136.1 MG/ML 20 ML
     Route: 042
     Dates: start: 20111004, end: 20111004
  62. RALTEGRAVIR [Concomitant]
     Active Substance: RALTEGRAVIR
     Indication: ANTIRETROVIRAL THERAPY
     Dosage: 600 MG DAILY
     Dates: start: 20110617, end: 20110712
  63. POTASSIUM CHLORIDE. [Concomitant]
     Active Substance: POTASSIUM CHLORIDE
     Dosage: 3G/20ML, TOTAL DAILY DOSE 6 AMP
     Route: 042
     Dates: start: 20111002, end: 20111003
  64. PHENIRAMINE [Concomitant]
     Active Substance: PHENIRAMINE
     Indication: PLATELET TRANSFUSION
     Dosage: 4MG/2ML 2ML
     Route: 042
     Dates: start: 20110609, end: 20110611
  65. PHENIRAMINE [Concomitant]
     Active Substance: PHENIRAMINE
     Dosage: 4MG/2ML, TOTAL DAILY DOSE: 4MG
     Route: 042
     Dates: start: 20110924, end: 20110928
  66. SEPTRIN [Concomitant]
     Active Substance: SULFAMETHOXAZOLE\TRIMETHOPRIM
     Indication: PROPHYLAXIS
     Route: 048
     Dates: start: 20110328, end: 20110525
  67. VINCRISTINE PHARMACHEMIE [Concomitant]
     Indication: B-CELL LYMPHOMA
     Dosage: 1.5 MG DAILY
     Route: 042
     Dates: start: 20110525, end: 20110525
  68. PARIET [Concomitant]
     Active Substance: RABEPRAZOLE SODIUM
     Indication: GASTRIC ULCER
     Dosage: 10 MG DAILY
     Route: 048
     Dates: start: 20110525, end: 20110525
  69. NISORONE [Concomitant]
     Indication: B-CELL LYMPHOMA
     Dosage: 100 MG DAILY
     Route: 048
     Dates: start: 20110525, end: 20110529
  70. CYMEVENE [Concomitant]
     Active Substance: GANCICLOVIR
     Indication: CYTOMEGALOVIRUS COLITIS
     Dosage: 200 MG DAILY DOSE
     Route: 042
     Dates: start: 20110619, end: 20110703
  71. CENTRUM [Concomitant]
     Active Substance: VITAMINS
     Indication: VITAMIN SUPPLEMENTATION
     Route: 048
     Dates: start: 20110725
  72. K-CONTIN CONTINUS [Concomitant]
     Dosage: 1800 MG DAILY
     Dates: start: 20111013, end: 20111013
  73. DAEWON MEGESTEROL ACETATE SUSPENSION [Concomitant]
     Indication: DECREASED APPETITE
     Dosage: 1 PACK
     Route: 048
     Dates: start: 20110806
  74. KCL [Concomitant]
     Active Substance: POTASSIUM CHLORIDE
     Indication: MINERAL SUPPLEMENTATION
     Dosage: 3G/20ML, 2 VIALS DAILY
     Dates: start: 20110812
  75. TRODOL [Concomitant]
     Indication: CANCER PAIN
     Dosage: 150 MG DAILY, 50MG/ML 1 ML
     Route: 042
     Dates: start: 20110815, end: 20110826
  76. SODIUM CHLORIDE. [Concomitant]
     Active Substance: SODIUM CHLORIDE
     Indication: ELECTROLYTE SUBSTITUTION THERAPY
     Dosage: 2 VIALS, 2.34G/20ML
     Route: 042
     Dates: start: 20110822, end: 20110830
  77. TRIDEL [Concomitant]
     Indication: B-CELL LYMPHOMA
  78. BLOOD CELLS, PACKED HUMAN [Concomitant]
     Active Substance: HUMAN BLOOD CELLS, PACKED\WHOLE BLOOD
     Indication: HAEMOGLOBIN ABNORMAL
     Dosage: TWO PACK, 400CC
     Route: 042
     Dates: start: 20110915, end: 20110915
  79. PANTOLOC [Concomitant]
     Active Substance: PANTOPRAZOLE SODIUM
     Indication: PROPHYLAXIS AGAINST GASTROINTESTINAL ULCER
     Route: 042
     Dates: start: 20111002, end: 20111002
  80. MEROPEN [Concomitant]
     Active Substance: MEROPENEM
     Indication: PROPHYLAXIS
     Dosage: 500MG/V
     Route: 042
     Dates: start: 20111002, end: 20111015
  81. DBPHARM PENTAMIDE ISETHIONATE [Concomitant]
     Indication: PNEUMOCYSTIS JIROVECII PNEUMONIA
     Route: 042
     Dates: start: 20111004, end: 20111019
  82. LASIX [Concomitant]
     Active Substance: FUROSEMIDE
     Indication: FLUID IMBALANCE
     Dosage: 20MG/2ML
     Route: 042
     Dates: start: 20111009, end: 20111009
  83. KALETRA [Suspect]
     Active Substance: LOPINAVIR\RITONAVIR
     Route: 048
     Dates: start: 20110819, end: 20111007
  84. DIFLUCAN [Concomitant]
     Active Substance: FLUCONAZOLE
     Dosage: 10MG/ML 35ML
     Route: 048
     Dates: start: 20110720, end: 20110720
  85. ZITHROMAX [Concomitant]
     Active Substance: AZITHROMYCIN DIHYDRATE
     Route: 048
     Dates: start: 20110713, end: 20110720
  86. BEARSE [Concomitant]
     Indication: PROPHYLAXIS
     Dosage: 3 TABS DAILY
     Route: 048
     Dates: start: 20110524, end: 20110524
  87. BEARSE [Concomitant]
     Indication: DYSPEPSIA
  88. POTASSIUM CHLORIDE. [Concomitant]
     Active Substance: POTASSIUM CHLORIDE
     Indication: PREMEDICATION
     Dosage: 40 INJ 3G/20ML
     Route: 042
     Dates: start: 20110524, end: 20110624
  89. POTASSIUM CHLORIDE. [Concomitant]
     Active Substance: POTASSIUM CHLORIDE
     Dosage: 2 VIALS DAILY, 40 INJ 3G/20ML
     Route: 042
     Dates: start: 20110911, end: 20110913
  90. POTASSIUM CHLORIDE. [Concomitant]
     Active Substance: POTASSIUM CHLORIDE
     Dosage: 3 VIALS DAILY, 40 INJ 3G/20ML
     Route: 042
     Dates: start: 20110919, end: 20110920
  91. POTASSIUM CHLORIDE. [Concomitant]
     Active Substance: POTASSIUM CHLORIDE
     Dosage: 3G/20ML, TOTAL DAILY DOSE 2 AMP
     Route: 042
     Dates: start: 20110927, end: 20110929
  92. POTASSIUM CHLORIDE. [Concomitant]
     Active Substance: POTASSIUM CHLORIDE
     Dosage: 40INJ 3G/20ML, DAILY 2 AMPOULES
     Route: 042
     Dates: start: 20111007, end: 20111008
  93. PHENIRAMINE [Concomitant]
     Active Substance: PHENIRAMINE
     Indication: PREMEDICATION
     Dosage: 4MG/2ML 2ML
     Route: 042
     Dates: start: 20110613, end: 20110613
  94. GASTER [Concomitant]
     Active Substance: FAMOTIDINE
     Indication: PROPHYLAXIS AGAINST GASTROINTESTINAL ULCER
     Dosage: 20MG(VIAL) DAILY
     Route: 042
     Dates: start: 20110616, end: 20110618
  95. MVH [Concomitant]
     Dosage: 5 ML DAILY
     Route: 042
     Dates: start: 20110630, end: 20110704
  96. SEPTRIN [Concomitant]
     Active Substance: SULFAMETHOXAZOLE\TRIMETHOPRIM
     Indication: PROPHYLAXIS
     Route: 048
     Dates: start: 20110713, end: 20110720
  97. K-CONTIN CONTINUS [Concomitant]
     Dosage: 2400 MG DAILY DOSE
     Route: 048
     Dates: start: 20110811
  98. K-CONTIN CONTINUS [Concomitant]
     Dosage: 3600 MG DAILY
     Dates: start: 20110905, end: 20110907
  99. THIAMINE HCL [Concomitant]
     Indication: VITAMIN SUPPLEMENTATION
     Route: 042
     Dates: start: 20110812
  100. PHENIRAMINE [Concomitant]
     Active Substance: PHENIRAMINE
     Indication: PREMEDICATION
     Dosage: 4MG/2ML 2ML
     Route: 042
     Dates: start: 20110525, end: 20110525
  101. TRODOL [Concomitant]
     Indication: B-CELL LYMPHOMA
  102. SODIUM CHLORIDE. [Concomitant]
     Active Substance: SODIUM CHLORIDE
     Dosage: 2 VIALS, 2.34G/20ML
     Route: 042
     Dates: start: 20110822, end: 20110830
  103. TRIDEL [Concomitant]
     Indication: CANCER PAIN
     Dosage: 150 MG DAILY
     Route: 048
     Dates: start: 20110826, end: 20110829
  104. PLATELETS [Concomitant]
     Active Substance: HUMAN PLATELET, ALLOGENIC
     Dosage: EIGHT PACK
     Route: 042
     Dates: start: 20110923
  105. PLATELETS [Concomitant]
     Active Substance: HUMAN PLATELET, ALLOGENIC
     Dosage: TOTAL DAILY DOSE 8 PACK
     Route: 042
     Dates: start: 20110929, end: 20110929
  106. 3TC [Concomitant]
     Active Substance: LAMIVUDINE
     Dosage: 300 MG DAILY
     Dates: start: 20110819
  107. GASTER [Concomitant]
     Active Substance: FAMOTIDINE
     Indication: GASTRIC ULCER
     Dosage: 20 MG DAILY
     Route: 048
     Dates: start: 20110518, end: 20110602
  108. MACPERAN [Concomitant]
     Indication: PROPHYLAXIS OF NAUSEA AND VOMITING
     Dosage: 15 MG DAILY
     Route: 048
     Dates: start: 20110524, end: 20110604
  109. MACPERAN [Concomitant]
     Route: 048
     Dates: start: 20110616, end: 20110618
  110. POTASSIUM CHLORIDE. [Concomitant]
     Active Substance: POTASSIUM CHLORIDE
     Dosage: 40INJ 3G/20ML
     Route: 042
     Dates: start: 20110804, end: 20110805
  111. POTASSIUM CHLORIDE. [Concomitant]
     Active Substance: POTASSIUM CHLORIDE
     Dosage: 3 VIALS DAILY, 40 INJ 3G/20ML
     Route: 042
     Dates: start: 20110913, end: 20110915
  112. MABTHERA [Concomitant]
     Active Substance: RITUXIMAB
     Indication: B-CELL LYMPHOMA
     Dosage: 10MG/ML 50ML, 100 ML DAILY
     Route: 042
     Dates: start: 20110525, end: 20110525
  113. MEGESTROL ACETATE. [Concomitant]
     Active Substance: MEGESTROL ACETATE
     Indication: DECREASED APPETITE
     Dosage: 1 PACK
     Route: 048
     Dates: start: 20110529, end: 20110529
  114. MVH [Concomitant]
     Indication: VITAMIN SUPPLEMENTATION
     Dosage: 5 ML DAILY
     Route: 042
     Dates: start: 20110617, end: 20110624
  115. THIAMINE HCL [Concomitant]
     Indication: VITAMIN SUPPLEMENTATION
     Dosage: 100 MG DAILY
     Route: 042
     Dates: start: 20110617, end: 20110624
  116. TAMIPOOL [Concomitant]
     Dosage: TOTALY DAILY DOSE 1 AMP
     Route: 042
     Dates: start: 20111001, end: 20111001
  117. TAMIPOOL [Concomitant]
     Dosage: 1 VIAL
     Route: 042
     Dates: start: 20111006, end: 20111006
  118. TAMIPOOL [Concomitant]
     Dosage: 1 VIAL DAILY
     Dates: start: 20110812
  119. K-CONTIN CONTINUS [Concomitant]
     Dosage: 3600 MG DAILY DOSE
     Route: 048
     Dates: start: 20110803, end: 20110810
  120. K-CONTIN CONTINUS [Concomitant]
     Route: 048
     Dates: end: 20110927
  121. ACTONEL [Concomitant]
     Active Substance: RISEDRONATE SODIUM
     Indication: OSTEOPOROSIS PROPHYLAXIS
     Dosage: 35 MG WEEKLY
     Route: 048
     Dates: start: 20110803
  122. PLATELETS [Concomitant]
     Active Substance: HUMAN PLATELET, ALLOGENIC
     Dosage: 8 PACK
     Route: 042
     Dates: start: 20111010, end: 20111010

REACTIONS (25)
  - Diarrhoea [Recovered/Resolved]
  - Pneumonia fungal [Recovering/Resolving]
  - AIDS dementia complex [Unknown]
  - Hypoalbuminaemia [Recovered/Resolved]
  - Hyponatraemia [Recovering/Resolving]
  - Hyperbilirubinaemia [Recovered/Resolved]
  - Neutropenia [Recovered/Resolved]
  - Delirium [Not Recovered/Not Resolved]
  - Clostridium difficile colitis [Recovered/Resolved]
  - Herpes zoster [Recovered/Resolved]
  - Thrombocytopenia [Not Recovered/Not Resolved]
  - Anaemia [Recovered/Resolved]
  - Neutropenia [Recovered/Resolved]
  - Urinary tract infection [Recovered/Resolved]
  - Cytomegalovirus colitis [Recovered/Resolved]
  - Asthenia [Recovering/Resolving]
  - Urinary tract infection [Recovered/Resolved]
  - Pneumothorax [Recovered/Resolved]
  - Hypoalbuminaemia [Recovered/Resolved]
  - Depressed mood [Not Recovered/Not Resolved]
  - Immune reconstitution inflammatory syndrome [Unknown]
  - Shock [Recovered/Resolved]
  - Osteoporosis [Recovering/Resolving]
  - Jaundice [Recovered/Resolved]
  - Device related sepsis [Recovered/Resolved]

NARRATIVE: CASE EVENT DATE: 20110529
